FAERS Safety Report 5016432-7 (Version None)
Quarter: 2006Q2

REPORT INFORMATION
  Report Type: 
  Country: None (occurrence: None)
  Receive Date: 20060531
  Receipt Date: 20060531
  Transmission Date: 20061013
  Serious: Yes (Life-Threatening)
  Sender: FDA-Public Use
  Company Number: None

PATIENT
  Age: 26 Year
  Sex: Female
  Weight: 66 kg

DRUGS (6)
  1. MEPERIDINE HCL [Suspect]
     Indication: RESPIRATORY DEPRESSION
     Dosage: 100 MG/10 CC  OD PR
     Dates: start: 20060509, end: 20060509
  2. TAZOCIN [Concomitant]
  3. METOCLOPRAMID [Concomitant]
  4. HEPARIN [Concomitant]
  5. FENTANYL EPIDURAL [Concomitant]
  6. DOMPIRIDONE [Concomitant]

REACTIONS (2)
  - CARDIAC ARREST [None]
  - RESPIRATORY DEPRESSION [None]
